FAERS Safety Report 11095289 (Version 1)
Quarter: 2015Q2

REPORT INFORMATION
  Report Type: Spontaneous
  Country: US (occurrence: US)
  Receive Date: 20150506
  Receipt Date: 20150506
  Transmission Date: 20150821
  Serious: Yes (Life-Threatening)
  Sender: FDA-Public Use
  Company Number: US-SA-2014SA163885

PATIENT
  Age: 44 Year
  Sex: Female

DRUGS (1)
  1. APIDRA [Suspect]
     Active Substance: INSULIN GLULISINE
     Indication: TYPE 1 DIABETES MELLITUS
     Dosage: 24-60 U , QD
     Route: 065

REACTIONS (7)
  - Blood glucose increased [Unknown]
  - Visual impairment [Unknown]
  - Dysstasia [Unknown]
  - Dysuria [Unknown]
  - Vomiting [Unknown]
  - Feeding disorder [Unknown]
  - Product gel formation [Unknown]

NARRATIVE: CASE EVENT DATE: 2013
